FAERS Safety Report 10062477 (Version 2)
Quarter: 2014Q2

REPORT INFORMATION
  Report Type: Spontaneous
  Country: AT (occurrence: AT)
  Receive Date: 20140407
  Receipt Date: 20140417
  Transmission Date: 20141212
  Serious: Yes (Life-Threatening)
  Sender: FDA-Public Use
  Company Number: AT-ASTRAZENECA-2014SE23324

PATIENT
  Age: 2 Year
  Sex: Male

DRUGS (1)
  1. LIDOCAINE VISCOUS [Suspect]
     Indication: APHTHOUS STOMATITIS
     Route: 048

REACTIONS (5)
  - Accidental overdose [Recovered/Resolved]
  - Posterior reversible encephalopathy syndrome [Recovered/Resolved]
  - Status epilepticus [Recovered/Resolved]
  - Cardiac arrest [Recovered/Resolved]
  - Respiratory failure [Recovered/Resolved]
